FAERS Safety Report 12429903 (Version 1)
Quarter: 2016Q2

REPORT INFORMATION
  Report Type: Spontaneous
  Country: US (occurrence: US)
  Receive Date: 20160602
  Receipt Date: 20160602
  Transmission Date: 20160815
  Serious: No
  Sender: FDA-Public Use
  Company Number: US-KADMON PHARMACEUTICALS, LLC-KAD201501-000076

PATIENT
  Sex: Male

DRUGS (2)
  1. INTERFERON [Concomitant]
     Active Substance: INTERFERON
  2. RIBAVIRIN. [Suspect]
     Active Substance: RIBAVIRIN
     Route: 048

REACTIONS (2)
  - Malaise [Unknown]
  - Weight decreased [Recovered/Resolved]
